FAERS Safety Report 19050969 (Version 1)
Quarter: 2021Q1

REPORT INFORMATION
  Report Type: Spontaneous
  Country: ES (occurrence: ES)
  Receive Date: 20210324
  Receipt Date: 20210324
  Transmission Date: 20210420
  Serious: No
  Sender: FDA-Public Use
  Company Number: ES-CISBIO-2021000003

PATIENT
  Age: 40 Year
  Sex: Female
  Weight: 93.5 kg

DRUGS (5)
  1. PULMOCIS [Suspect]
     Active Substance: TECHNETIUM TC-99M ALBUMIN AGGREGATED
     Route: 042
     Dates: start: 20210104, end: 20210104
  2. FOLIC ACID. [Concomitant]
     Active Substance: FOLIC ACID
     Dates: start: 202006
  3. ALDOMET 500 [Concomitant]
     Dates: start: 20210102
  4. LABETALOL 100 MG [Concomitant]
     Active Substance: LABETALOL HYDROCHLORIDE
     Dates: start: 20210102
  5. TEKCIS 2?50 GBQ GENERADOR DE RADIONUCLEIDO [Suspect]
     Active Substance: TECHNETIUM TC-99M SODIUM PERTECHNETATE
     Route: 042
     Dates: start: 20210104, end: 20210104

REACTIONS (1)
  - Maternal exposure during pregnancy [Recovered/Resolved]

NARRATIVE: CASE EVENT DATE: 20210104
